FAERS Safety Report 16651388 (Version 1)
Quarter: 2019Q3

REPORT INFORMATION
  Report Type: Spontaneous
  Country: US (occurrence: US)
  Receive Date: 20190731
  Receipt Date: 20190731
  Transmission Date: 20191004
  Serious: No
  Sender: FDA-Public Use
  Company Number: US-KYOWAKIRIN-2019BKK011908

PATIENT

DRUGS (1)
  1. CRYSVITA [Suspect]
     Active Substance: BUROSUMAB-TWZA
     Indication: PRODUCT USED FOR UNKNOWN INDICATION
     Dosage: 10 MG, 1X/2 WEEKS
     Route: 058

REACTIONS (2)
  - Injection site erythema [Recovered/Resolved]
  - Injection site scab [Recovered/Resolved]

NARRATIVE: CASE EVENT DATE: 20190705
